FAERS Safety Report 11433563 (Version 1)
Quarter: 2015Q3

REPORT INFORMATION
  Report Type: Spontaneous
  Country: US (occurrence: US)
  Receive Date: 20150831
  Receipt Date: 20150831
  Transmission Date: 20151125
  Serious: No
  Sender: FDA-Public Use
  Company Number: US-ELI_LILLY_AND_COMPANY-US201508004351

PATIENT
  Sex: Female
  Weight: 46.26 kg

DRUGS (1)
  1. FORTEO [Suspect]
     Active Substance: TERIPARATIDE
     Indication: OSTEOPOROSIS
     Dosage: UNK, QD
     Route: 065
     Dates: start: 20150810

REACTIONS (11)
  - Headache [Unknown]
  - Blood pressure decreased [Unknown]
  - Back pain [Unknown]
  - Diarrhoea [Unknown]
  - Heart rate increased [Unknown]
  - Pain [Unknown]
  - Chest pain [Unknown]
  - Muscle spasms [Unknown]
  - Abdominal pain upper [Unknown]
  - Dyspnoea [Unknown]
  - Hypersensitivity [Unknown]

NARRATIVE: CASE EVENT DATE: 20150810
